FAERS Safety Report 23776886 (Version 2)
Quarter: 2025Q3

REPORT INFORMATION
  Report Type: Report from Study
  Country: CA (occurrence: CA)
  Receive Date: 20240424
  Receipt Date: 20250920
  Transmission Date: 20251020
  Serious: Yes (Hospitalization, Other)
  Sender: AUROBINDO
  Company Number: CA-AUROBINDO-AUR-APL-2024-018557

PATIENT
  Sex: Male

DRUGS (21)
  1. METHOTREXATE [Suspect]
     Active Substance: METHOTREXATE
     Indication: Juvenile idiopathic arthritis
     Route: 065
  2. METHOTREXATE [Suspect]
     Active Substance: METHOTREXATE
     Indication: Still^s disease
  3. TOFACITINIB [Suspect]
     Active Substance: TOFACITINIB
     Indication: Immunosuppressant drug therapy
     Route: 065
  4. TOFACITINIB [Suspect]
     Active Substance: TOFACITINIB
     Indication: Juvenile idiopathic arthritis
  5. TOFACITINIB [Suspect]
     Active Substance: TOFACITINIB
     Indication: Still^s disease
  6. MYCOPHENOLATE MOFETIL [Suspect]
     Active Substance: MYCOPHENOLATE MOFETIL
     Indication: Immunosuppressant drug therapy
     Route: 065
  7. SILTUXIMAB [Suspect]
     Active Substance: SILTUXIMAB
     Indication: Juvenile idiopathic arthritis
     Route: 065
  8. SILTUXIMAB [Suspect]
     Active Substance: SILTUXIMAB
     Indication: Still^s disease
  9. CYCLOSPORINE [Suspect]
     Active Substance: CYCLOSPORINE
     Indication: Immunosuppressant drug therapy
     Route: 065
  10. TOCILIZUMAB [Suspect]
     Active Substance: TOCILIZUMAB
     Indication: Juvenile idiopathic arthritis
     Route: 065
  11. TOCILIZUMAB [Suspect]
     Active Substance: TOCILIZUMAB
     Indication: Still^s disease
  12. CANAKINUMAB [Suspect]
     Active Substance: CANAKINUMAB
     Indication: Juvenile idiopathic arthritis
     Route: 065
  13. CANAKINUMAB [Suspect]
     Active Substance: CANAKINUMAB
     Indication: Still^s disease
  14. INFLIXIMAB [Concomitant]
     Active Substance: INFLIXIMAB
     Indication: Juvenile idiopathic arthritis
     Route: 065
  15. INFLIXIMAB [Concomitant]
     Active Substance: INFLIXIMAB
     Indication: Still^s disease
  16. METHYLPREDNISOLONE [Concomitant]
     Active Substance: METHYLPREDNISOLONE
     Indication: Immunosuppressant drug therapy
     Route: 065
  17. RITUXIMAB [Concomitant]
     Active Substance: RITUXIMAB
     Indication: Immunosuppressant drug therapy
     Route: 065
  18. ADALIMUMAB [Concomitant]
     Active Substance: ADALIMUMAB
     Indication: Immunosuppressant drug therapy
     Route: 058
  19. THYMOCYTE IMMUNE GLOBULIN NOS [Concomitant]
     Active Substance: THYMOCYTE IMMUNE GLOBULIN NOS
     Indication: Bone marrow conditioning regimen
     Route: 065
  20. BUSULFAN [Concomitant]
     Active Substance: BUSULFAN
     Indication: Bone marrow conditioning regimen
     Route: 065
  21. FLUDARABINE [Concomitant]
     Active Substance: FLUDARABINE PHOSPHATE
     Indication: Bone marrow conditioning regimen
     Route: 065

REACTIONS (16)
  - Osteopenia [Recovering/Resolving]
  - Hepatic steatosis [Recovering/Resolving]
  - Cataract [Recovering/Resolving]
  - Short stature [Recovered/Resolved]
  - Cushingoid [Recovered/Resolved]
  - Hypertension [Recovered/Resolved]
  - Drug ineffective [Recovering/Resolving]
  - Nephropathy toxic [Recovering/Resolving]
  - Arthropathy [Recovering/Resolving]
  - Fracture [Recovering/Resolving]
  - Growth retardation [Recovering/Resolving]
  - Renal disorder [Recovering/Resolving]
  - Spinal instability [Recovering/Resolving]
  - Arthritis [Unknown]
  - Atlantoaxial instability [Unknown]
  - Osteoporotic fracture [Unknown]
